FAERS Safety Report 4312011-5 (Version None)
Quarter: 2004Q1

REPORT INFORMATION
  Report Type: 
  Country: None (occurrence: None)
  Receive Date: 20040303
  Receipt Date: 20040216
  Transmission Date: 20041129
  Serious: Yes (Hospitalization)
  Sender: FDA-Public Use
  Company Number: 2003AP02436

PATIENT
  Age: 54 Year
  Sex: Female

DRUGS (2)
  1. ARIMIDEX [Suspect]
     Indication: BREAST CANCER
     Dosage: 1 MG DAILY PO
     Route: 048
     Dates: start: 20020507, end: 20021029
  2. NOLVADEX [Suspect]
     Indication: BREAST CANCER
     Dates: start: 19990501, end: 20020501

REACTIONS (3)
  - ENDOMETRIOSIS [None]
  - UTERINE HAEMORRHAGE [None]
  - UTERINE POLYP [None]
